FAERS Safety Report 14077446 (Version 1)
Quarter: 2017Q4

REPORT INFORMATION
  Report Type: Spontaneous
  Country: US (occurrence: US)
  Receive Date: 20171012
  Receipt Date: 20171012
  Transmission Date: 20180321
  Serious: Yes (Hospitalization)
  Sender: FDA-Public Use
  Company Number: US-WEST-WARD PHARMACEUTICALS CORP.-US-H14001-17-03761

PATIENT
  Sex: Female

DRUGS (6)
  1. MORPHINE [Suspect]
     Active Substance: MORPHINE
     Indication: BACK PAIN
     Route: 037
     Dates: start: 2004
  2. OXYCODONE [Suspect]
     Active Substance: OXYCODONE
     Indication: BREAKTHROUGH PAIN
     Route: 065
  3. MORPHINE [Suspect]
     Active Substance: MORPHINE
     Route: 040
     Dates: start: 2004
  4. MORPHINE [Suspect]
     Active Substance: MORPHINE
     Route: 037
     Dates: end: 20130627
  5. HYDROCODONE [Suspect]
     Active Substance: HYDROCODONE
     Indication: BREAKTHROUGH PAIN
     Route: 065
  6. FENTANYL. [Concomitant]
     Active Substance: FENTANYL
     Indication: PAIN
     Route: 065

REACTIONS (12)
  - Pneumonia [Unknown]
  - Pain [Recovered/Resolved]
  - Lumbosacral radiculopathy [Unknown]
  - Dysstasia [Recovered/Resolved]
  - Paraesthesia [Unknown]
  - Hypoaesthesia [Unknown]
  - Sensory disturbance [Unknown]
  - Small intestinal obstruction [Unknown]
  - Anxiety [Unknown]
  - Constipation [Unknown]
  - Bursitis [Unknown]
  - Lumbosacral plexopathy [Unknown]

NARRATIVE: CASE EVENT DATE: 201110
